FAERS Safety Report 7997291-7 (Version None)
Quarter: 2011Q4

REPORT INFORMATION
  Report Type: 
  Country: None (occurrence: None)
  Receive Date: 20111221
  Receipt Date: 20111214
  Transmission Date: 20120403
  Serious: No
  Sender: FDA-Public Use
  Company Number: US-B.I. PHARMACEUTICALS,INC./RIDGEFIELD-2011-BP-11718BP

PATIENT
  Age: 73 Year
  Sex: Male

DRUGS (8)
  1. ACETAMINOPHEN [Concomitant]
     Indication: PAIN
     Dosage: 1000 MG
     Route: 048
     Dates: start: 20070101
  2. AMLODIPINE [Concomitant]
     Indication: HYPERTENSION
     Dosage: 5 MG
     Route: 048
     Dates: start: 20101225
  3. LOVASTATIN [Concomitant]
     Indication: BLOOD CHOLESTEROL INCREASED
     Dosage: 20 MG
     Route: 048
     Dates: start: 20100101
  4. SYMBICORT [Concomitant]
     Indication: ASTHMA
     Dosage: 2 PUF
     Route: 048
     Dates: start: 20070101
  5. PRADAXA [Suspect]
     Indication: ATRIAL FIBRILLATION
     Dosage: 300 MG
     Route: 048
     Dates: start: 20110221
  6. TRICOR [Concomitant]
     Indication: BLOOD TRIGLYCERIDES INCREASED
     Dosage: 145 MG
     Route: 048
     Dates: start: 20100101
  7. CHLORPHENIRAMINE MALEATE [Concomitant]
     Indication: SEASONAL ALLERGY
     Route: 048
     Dates: start: 20100101
  8. TEMAZEPAM [Concomitant]
     Indication: INSOMNIA
     Dosage: 30 MG
     Route: 048
     Dates: start: 20101225

REACTIONS (4)
  - FLUSHING [None]
  - FALL [None]
  - RECTAL HAEMORRHAGE [None]
  - MUSCLE STRAIN [None]
